FAERS Safety Report 10171292 (Version 1)
Quarter: 2014Q2

REPORT INFORMATION
  Report Type: Spontaneous
  Country: US (occurrence: US)
  Receive Date: 20140514
  Receipt Date: 20140514
  Transmission Date: 20141212
  Serious: No
  Sender: FDA-Public Use
  Company Number: US-PFIZER INC-2014132197

PATIENT
  Age: 95 Year
  Sex: Male
  Weight: 86.2 kg

DRUGS (3)
  1. LYRICA [Suspect]
     Indication: NEUROPATHY PERIPHERAL
     Dosage: 50 MG, 3X/DAY
     Dates: start: 201404
  2. LYRICA [Suspect]
     Dosage: 75 MG, 3X/DAY
  3. MULTAQ [Concomitant]
     Indication: ATRIAL FIBRILLATION
     Dosage: UNK, 2X/DAY

REACTIONS (2)
  - Pruritus [Unknown]
  - Constipation [Unknown]
